FAERS Safety Report 8688732 (Version 4)
Quarter: 2016Q2

REPORT INFORMATION
  Report Type: Report from Study
  Country: US (occurrence: US)
  Receive Date: 20120727
  Receipt Date: 20160407
  Transmission Date: 20160815
  Serious: Yes (Disabling)
  Sender: FDA-Public Use
  Company Number: US-ROCHE-1041814

PATIENT
  Age: 52 Year
  Sex: Female
  Weight: 64.5 kg

DRUGS (7)
  1. LAMOTRIGINE. [Concomitant]
     Active Substance: LAMOTRIGINE
     Indication: BIPOLAR DISORDER
     Route: 048
     Dates: start: 200603
  2. RIBAVIRIN. [Suspect]
     Active Substance: RIBAVIRIN
     Indication: CHRONIC HEPATITIS C
     Route: 048
     Dates: start: 20110607, end: 20110824
  3. ADVIL [Concomitant]
     Active Substance: IBUPROFEN
     Indication: PAIN
     Route: 048
     Dates: start: 2011
  4. NEXIUM [Concomitant]
     Active Substance: ESOMEPRAZOLE MAGNESIUM
     Indication: DYSPEPSIA
     Route: 048
     Dates: start: 2011
  5. RO 5466731 (HCV NS5B INHIBITOR) [Suspect]
     Active Substance: SETROBUVIR
     Route: 048
     Dates: end: 20110824
  6. PEG-INTERFERON ALFA 2A [Suspect]
     Active Substance: PEGINTERFERON ALFA-2A
     Indication: CHRONIC HEPATITIS C
     Route: 058
     Dates: start: 20110607, end: 20110824
  7. RO 5466731 (HCV NS5B INHIBITOR) [Suspect]
     Active Substance: SETROBUVIR
     Indication: CHRONIC HEPATITIS C
     Route: 048
     Dates: start: 20110607

REACTIONS (2)
  - Suicidal ideation [Recovered/Resolved with Sequelae]
  - Emotional distress [Recovered/Resolved with Sequelae]

NARRATIVE: CASE EVENT DATE: 20110824
